FAERS Safety Report 11937107 (Version 1)
Quarter: 2016Q1

REPORT INFORMATION
  Report Type: Report from Study
  Country: BR (occurrence: BR)
  Receive Date: 20160121
  Receipt Date: 20160121
  Transmission Date: 20160526
  Serious: Yes (Other)
  Sender: FDA-Public Use
  Company Number: BR-ABBVIE-16K-020-1540119-00

PATIENT
  Age: 49 Year
  Sex: Female
  Weight: 76 kg

DRUGS (8)
  1. HUMIRA [Suspect]
     Active Substance: ADALIMUMAB
     Indication: ANKYLOSING SPONDYLITIS
     Route: 058
     Dates: start: 20140901
  2. CODEINE [Concomitant]
     Active Substance: CODEINE
     Indication: SPONDYLITIS
     Route: 048
     Dates: start: 20140901
  3. CALCIUM [Concomitant]
     Active Substance: CALCIUM
     Indication: OSTEOPOROSIS
     Route: 048
     Dates: start: 201504
  4. ACETAMINOPHEN. [Concomitant]
     Active Substance: ACETAMINOPHEN
     Indication: SPONDYLITIS
     Route: 048
     Dates: start: 20140901
  5. VELIJA [Concomitant]
     Active Substance: DULOXETINE HYDROCHLORIDE
     Indication: DEPRESSION
     Route: 048
  6. CYCLOBENZAPRINE [Concomitant]
     Active Substance: CYCLOBENZAPRINE
     Indication: SPONDYLITIS
     Route: 048
     Dates: start: 20140901
  7. FAMOTIDINE. [Concomitant]
     Active Substance: FAMOTIDINE
     Indication: SPONDYLITIS
     Route: 048
     Dates: start: 20140901
  8. METHOTREXATE [Concomitant]
     Active Substance: METHOTREXATE
     Indication: SPONDYLITIS
     Route: 048
     Dates: start: 20140901

REACTIONS (4)
  - Pain [Unknown]
  - Blood cholesterol abnormal [Unknown]
  - Bone loss [Not Recovered/Not Resolved]
  - Dermatitis allergic [Unknown]

NARRATIVE: CASE EVENT DATE: 201411
